FAERS Safety Report 5063085-8 (Version None)
Quarter: 2006Q3

REPORT INFORMATION
  Report Type: 
  Country: None (occurrence: None)
  Receive Date: 20060727
  Receipt Date: 20060714
  Transmission Date: 20061208
  Serious: Yes (Other)
  Sender: FDA-Public Use
  Company Number: US-BRISTOL-MYERS SQUIBB COMPANY-13442694

PATIENT
  Age: 32 Year
  Sex: Female
  Weight: 82 kg

DRUGS (11)
  1. ORENCIA [Suspect]
     Indication: RHEUMATOID ARTHRITIS
     Dosage: ALSO RECEIVED ABATACEPT IV FOR 30 MINUTES ON 11-JUL-2006
     Route: 042
     Dates: start: 20060627
  2. PREDNISONE TAB [Concomitant]
  3. ACETAMINOPHEN [Concomitant]
  4. PROPOXYPHENE NAPSYLATE [Concomitant]
  5. CELEBREX [Concomitant]
  6. HYDROXYCHLOROQUINE SULFATE [Concomitant]
  7. FERROUS SULFATE TAB [Concomitant]
  8. DOCUSATE SODIUM [Concomitant]
  9. LEVOTHYROXINE SODIUM [Concomitant]
  10. NAPROXEN [Concomitant]
  11. VITAMINS [Concomitant]

REACTIONS (8)
  - BRONCHITIS [None]
  - HAEMATEMESIS [None]
  - HALLUCINATION [None]
  - INSOMNIA [None]
  - MYALGIA [None]
  - PAIN [None]
  - SUICIDAL IDEATION [None]
  - VISION BLURRED [None]
